FAERS Safety Report 11914097 (Version 4)
Quarter: 2016Q2

REPORT INFORMATION
  Report Type: Report from Study
  Country: US (occurrence: US)
  Receive Date: 20160113
  Receipt Date: 20160523
  Transmission Date: 20160815
  Serious: Yes (Death, Other)
  Sender: FDA-Public Use
  Company Number: US-BAYER-2015-483264

PATIENT
  Age: 59 Year
  Sex: Male

DRUGS (1)
  1. NEXAVAR [Suspect]
     Active Substance: SORAFENIB
     Indication: HEPATOCELLULAR CARCINOMA
     Dosage: 200 MG, BID
     Route: 048
     Dates: start: 20151130, end: 20160117

REACTIONS (23)
  - Diarrhoea [None]
  - Nephrolithiasis [None]
  - Anaemia [None]
  - Chromaturia [None]
  - Rash pruritic [None]
  - Decreased appetite [None]
  - Haematuria [None]
  - Hepatic cancer metastatic [Fatal]
  - Faeces discoloured [None]
  - Dyspnoea [None]
  - Paraesthesia [None]
  - Abdominal rigidity [None]
  - Dysuria [None]
  - Blood pressure increased [None]
  - Diarrhoea [Recovering/Resolving]
  - Tinnitus [Not Recovered/Not Resolved]
  - Pain [None]
  - Haemorrhoids [None]
  - Nasal congestion [Not Recovered/Not Resolved]
  - Acne [None]
  - Ear discomfort [None]
  - Abdominal distension [Not Recovered/Not Resolved]
  - Back pain [Not Recovered/Not Resolved]

NARRATIVE: CASE EVENT DATE: 201512
